FAERS Safety Report 7054643-X (Version None)
Quarter: 2010Q4

REPORT INFORMATION
  Report Type: 
  Country: None (occurrence: None)
  Receive Date: 20101020
  Receipt Date: 20101014
  Transmission Date: 20110411
  Serious: Yes (Hospitalization, Other)
  Sender: FDA-Public Use
  Company Number: BR-ABBOTT-10P-020-0657403-00

PATIENT
  Sex: Female
  Weight: 73 kg

DRUGS (14)
  1. HUMIRA [Suspect]
     Indication: PSORIATIC ARTHROPATHY
     Route: 058
     Dates: start: 20100101
  2. HUMIRA [Suspect]
     Route: 058
     Dates: start: 20090101, end: 20100501
  3. AMLOVASC [Concomitant]
     Indication: HYPERTENSION
     Route: 048
     Dates: start: 20100528
  4. ENALAPRIL MALEATE [Concomitant]
     Indication: HYPERTENSION
     Route: 048
     Dates: start: 20060101
  5. NPH INSULIN [Concomitant]
     Indication: DIABETES MELLITUS
     Route: 058
     Dates: start: 20050101
  6. REGULAR INSULIN [Concomitant]
     Indication: DIABETES MELLITUS
     Route: 058
     Dates: start: 20050101
  7. METFORMIN [Concomitant]
     Indication: DIABETES MELLITUS
     Route: 048
     Dates: start: 20000101
  8. PREDNISONE TAB [Concomitant]
     Indication: MUSCULOSKELETAL PAIN
     Route: 048
     Dates: start: 20070101
  9. METHOTREXATE [Concomitant]
     Indication: MUSCULOSKELETAL PAIN
     Route: 048
     Dates: start: 20070101
  10. FOLIC ACID [Concomitant]
     Indication: PROPHYLAXIS
     Route: 048
     Dates: start: 20070101
  11. FOLIC ACID [Concomitant]
     Indication: ADVERSE DRUG REACTION
  12. FOLIC ACID [Concomitant]
     Indication: RENAL DISORDER
  13. FOLIC ACID [Concomitant]
  14. LODIPIL [Concomitant]
     Indication: DIABETES MELLITUS
     Dates: start: 20060101

REACTIONS (6)
  - ARTERIAL OCCLUSIVE DISEASE [None]
  - ASTHENIA [None]
  - CARDIAC DISORDER [None]
  - FATIGUE [None]
  - PAIN IN EXTREMITY [None]
  - PSORIATIC ARTHROPATHY [None]
